FAERS Safety Report 17594915 (Version 1)
Quarter: 2020Q1

REPORT INFORMATION
  Report Type: Spontaneous
  Country: IT (occurrence: IT)
  Receive Date: 20200328
  Receipt Date: 20200328
  Transmission Date: 20200409
  Serious: Yes (Life-Threatening, Hospitalization, Congenital Anomaly, Other)
  Sender: FDA-Public Use
  Company Number: IT-ACCORD-177656

PATIENT
  Sex: Female
  Weight: 2.02 kg

DRUGS (8)
  1. PARACETAMOL [Interacting]
     Active Substance: ACETAMINOPHEN
     Indication: HEADACHE
     Dosage: OCCASIONALLY IN THE SECOND AND THIRD TRIMESTER
     Route: 064
  2. PARACETAMOL [Interacting]
     Active Substance: ACETAMINOPHEN
     Indication: HEADACHE
     Dosage: IN THE FIRST TRIMESTER
     Route: 064
  3. DIAZEPAM. [Concomitant]
     Active Substance: DIAZEPAM
     Indication: PANIC ATTACK
     Route: 064
  4. PARACETAMOL [Interacting]
     Active Substance: ACETAMINOPHEN
     Indication: HEADACHE
     Dosage: IN THE FIRST TRIMESTER
     Route: 064
  5. LORAZEPAM. [Concomitant]
     Active Substance: LORAZEPAM
     Indication: PANIC ATTACK
     Route: 064
  6. SERTRALINE [Suspect]
     Active Substance: SERTRALINE HYDROCHLORIDE
     Indication: PANIC ATTACK
     Route: 064
  7. DIAZEPAM. [Concomitant]
     Active Substance: DIAZEPAM
     Indication: PANIC ATTACK
     Route: 064
  8. PARACETAMOL [Interacting]
     Active Substance: ACETAMINOPHEN
     Indication: HEADACHE
     Dosage: OCCASIONALLY IN THE SECOND AND THIRD TRIMESTER
     Route: 064

REACTIONS (11)
  - Drug interaction [Unknown]
  - Pulmonary hypertension [Recovering/Resolving]
  - Hypoxia [Recovered/Resolved]
  - Right ventricular dilatation [Recovered/Resolved]
  - Tricuspid valve incompetence [Recovered/Resolved]
  - Ductus arteriosus premature closure [Recovered/Resolved]
  - Cardiac dysfunction [Recovered/Resolved]
  - Pulmonary valve incompetence [Unknown]
  - Foetal exposure during pregnancy [Unknown]
  - Cardiomegaly [Recovered/Resolved]
  - Right ventricular hypertrophy [Recovered/Resolved]
